FAERS Safety Report 7065606-2 (Version None)
Quarter: 2010Q4

REPORT INFORMATION
  Report Type: 
  Country: None (occurrence: None)
  Receive Date: 20101027
  Receipt Date: 20101019
  Transmission Date: 20110411
  Serious: Yes (Hospitalization)
  Sender: FDA-Public Use
  Company Number: US-BAYER-201019585BCC

PATIENT
  Age: 35 Year
  Sex: Female
  Weight: 98 kg

DRUGS (4)
  1. ALEVE [Suspect]
     Indication: PAIN
     Dosage: 8 TO 12 TABLETS DAILY
     Route: 048
     Dates: start: 20100821
  2. DIOVAN [Concomitant]
     Route: 065
  3. FLEXIRAL [Concomitant]
  4. VICODIN [Concomitant]

REACTIONS (4)
  - ABDOMINAL DISCOMFORT [None]
  - ABDOMINAL PAIN UPPER [None]
  - HAEMATOCHEZIA [None]
  - NAUSEA [None]
